FAERS Safety Report 9029614 (Version 1)
Quarter: 2013Q1

REPORT INFORMATION
  Report Type: Spontaneous
  Country: DE (occurrence: DE)
  Receive Date: 20130125
  Receipt Date: 20130125
  Transmission Date: 20140127
  Serious: Yes (Other)
  Sender: FDA-Public Use
  Company Number: DE-ELI_LILLY_AND_COMPANY-DE201301005012

PATIENT
  Sex: Female

DRUGS (3)
  1. FORSTEO [Suspect]
     Indication: OSTEOPOROSIS
     Dosage: UNK, UNKNOWN
     Route: 058
     Dates: start: 20110822
  2. CYMBALTA [Concomitant]
     Dosage: UNK, UNKNOWN
     Route: 065
  3. EUTHYROX [Concomitant]
     Dosage: UNK, UNKNOWN
     Route: 065

REACTIONS (2)
  - Pubis fracture [Not Recovered/Not Resolved]
  - Depression [Not Recovered/Not Resolved]
